FAERS Safety Report 12771030 (Version 2)
Quarter: 2016Q4

REPORT INFORMATION
  Report Type: Spontaneous
  Country: US (occurrence: US)
  Receive Date: 20160922
  Receipt Date: 20161027
  Transmission Date: 20170207
  Serious: No
  Sender: FDA-Public Use
  Company Number: US-GLAXOSMITHKLINE-US2016137851

PATIENT
  Sex: Female
  Weight: 61.22 kg

DRUGS (16)
  1. PLAVIX TABLET [Concomitant]
  2. LOVASTATIN. [Concomitant]
     Active Substance: LOVASTATIN
  3. IBUPROFEN TABLET [Concomitant]
     Active Substance: IBUPROFEN
  4. NASONEX [Concomitant]
     Active Substance: MOMETASONE FUROATE
  5. MECLIZINE [Concomitant]
     Active Substance: MECLIZINE HYDROCHLORIDE
  6. CETRIZINE [Concomitant]
     Active Substance: CETIRIZINE HYDROCHLORIDE
  7. BREO ELLIPTA [Suspect]
     Active Substance: FLUTICASONE FUROATE\VILANTEROL TRIFENATATE
     Indication: CHRONIC OBSTRUCTIVE PULMONARY DISEASE
     Dosage: 1 PUFF(S), QD
     Route: 055
  8. BENADRYL TABLET [Concomitant]
  9. PROAIR HFA INHALATION POWDER [Concomitant]
  10. FISH OIL [Concomitant]
     Active Substance: FISH OIL
  11. ALBUTEROL + IPRATROPIUM INHALATION SOLUTION [Concomitant]
  12. CALTRATE WITH VITAMIN D [Concomitant]
     Active Substance: CALCIUM CARBONATE\CHOLECALCIFEROL
  13. VITAMIN B12 [Concomitant]
     Active Substance: CYANOCOBALAMIN
  14. ALPRAZOLAM TABLET [Concomitant]
  15. TEMAZEPAM. [Concomitant]
     Active Substance: TEMAZEPAM
  16. MONTELUKAST TABLET [Concomitant]

REACTIONS (3)
  - Drug ineffective [Unknown]
  - Inability to afford medication [Unknown]
  - Dyspnoea exertional [Unknown]
